FAERS Safety Report 24376989 (Version 1)
Quarter: 2024Q3

REPORT INFORMATION
  Report Type: Report from Study
  Country: BE (occurrence: BE)
  Receive Date: 20240930
  Receipt Date: 20240930
  Transmission Date: 20241017
  Serious: Yes (Hospitalization, Other)
  Sender: ABBVIE
  Company Number: BE-ABBVIE-5937310

PATIENT
  Age: 68 Year
  Sex: Female

DRUGS (1)
  1. SKYRIZI [Suspect]
     Active Substance: RISANKIZUMAB-RZAA
     Indication: Crohn^s disease
     Route: 058
     Dates: start: 20240405, end: 20240725

REACTIONS (3)
  - Varices oesophageal [Unknown]
  - Therapeutic product effect incomplete [Unknown]
  - Ascites [Unknown]

NARRATIVE: CASE EVENT DATE: 20240101
